FAERS Safety Report 5606049-5 (Version None)
Quarter: 2008Q1

REPORT INFORMATION
  Report Type: 
  Country: None (occurrence: None)
  Receive Date: 20080123
  Receipt Date: 20080123
  Transmission Date: 20080703
  Serious: Yes (Life-Threatening)
  Sender: FDA-Public Use
  Company Number: None

PATIENT
  Age: 37 Year
  Sex: Female
  Weight: 52.1637 kg

DRUGS (1)
  1. CHANTIX [Suspect]
     Indication: SMOKING CESSATION THERAPY
     Dosage: .5 MG UP TO TWICE DAILY PO 1 MG TWICE DAILY-3 WKS. PO
     Route: 048
     Dates: start: 20071015, end: 20071115

REACTIONS (7)
  - ADJUSTMENT DISORDER [None]
  - AMNESIA [None]
  - ANXIETY [None]
  - DEPRESSION [None]
  - FATIGUE [None]
  - IMPAIRED WORK ABILITY [None]
  - TEARFULNESS [None]
